FAERS Safety Report 5927104-6 (Version None)
Quarter: 2008Q4

REPORT INFORMATION
  Report Type: 
  Country: None (occurrence: None)
  Receive Date: 20081022
  Receipt Date: 20081017
  Transmission Date: 20090506
  Serious: Yes (Life-Threatening, Hospitalization)
  Sender: FDA-Public Use
  Company Number: PL-B.I. PHARMACEUTICALS,INC./RIDGEFIELD-2008-AP-00208AP

PATIENT
  Sex: Female
  Weight: 79 kg

DRUGS (8)
  1. MOVALIS [Suspect]
     Indication: OSTEOARTHRITIS
     Dosage: 15MG
     Route: 030
     Dates: start: 20080819, end: 20080822
  2. MOVALIS [Suspect]
     Indication: PHLEBITIS
  3. INSULIN MIXTARD 30 [Concomitant]
  4. DETRALEX [Concomitant]
  5. AMLOZEK [Concomitant]
  6. EXELON 3 MG [Concomitant]
  7. PREDUCTAL MR [Concomitant]
  8. ENARENAL [Concomitant]

REACTIONS (2)
  - HYPOGLYCAEMIA [None]
  - SHOCK HYPOGLYCAEMIC [None]
